FAERS Safety Report 15251524 (Version 2)
Quarter: 2025Q1

REPORT INFORMATION
  Report Type: Spontaneous
  Country: US (occurrence: US)
  Receive Date: 20180807
  Receipt Date: 20250128
  Transmission Date: 20250408
  Serious: Yes (Congenital Anomaly, Other)
  Sender: PFIZER
  Company Number: US-PFIZER INC-2018312565

PATIENT

DRUGS (1)
  1. METHOTREXATE SODIUM [Suspect]
     Active Substance: METHOTREXATE SODIUM
     Route: 064

REACTIONS (3)
  - Maternal exposure during pregnancy [Unknown]
  - Cleft lip and palate [Unknown]
  - Congenital anomaly [Unknown]
